FAERS Safety Report 7730675-0 (Version None)
Quarter: 2011Q3

REPORT INFORMATION
  Report Type: 
  Country: None (occurrence: None)
  Receive Date: 20110906
  Receipt Date: 20110831
  Transmission Date: 20111222
  Serious: Yes (Hospitalization, Other)
  Sender: FDA-Public Use
  Company Number: US-GLAXOSMITHKLINE-A0915355A

PATIENT
  Age: 27 Year
  Sex: Female

DRUGS (5)
  1. PROMACTA [Suspect]
     Indication: IDIOPATHIC THROMBOCYTOPENIC PURPURA
     Dates: start: 20101008
  2. STEROIDS [Suspect]
  3. IMMUNE GLOBULIN INTRAVENOUS (HUMAN) [Suspect]
  4. CORTICOSTEROIDS [Concomitant]
  5. PREDNISONE [Concomitant]

REACTIONS (8)
  - HYPERCOAGULATION [None]
  - NAUSEA [None]
  - DIPLOPIA [None]
  - TRANSIENT ISCHAEMIC ATTACK [None]
  - VOMITING [None]
  - HEADACHE [None]
  - CEREBROVASCULAR ACCIDENT [None]
  - NYSTAGMUS [None]
